FAERS Safety Report 16961657 (Version 1)
Quarter: 2019Q4

REPORT INFORMATION
  Report Type: Spontaneous
  Country: US (occurrence: US)
  Receive Date: 20191025
  Receipt Date: 20191025
  Transmission Date: 20200122
  Serious: No
  Sender: FDA-Public Use
  Company Number: US-CELGENEUS-USA-20191007667

PATIENT
  Sex: Male

DRUGS (3)
  1. SIMPONI ARIA [Concomitant]
     Active Substance: GOLIMUMAB
     Indication: PNEUMONIA
     Route: 065
  2. OTEZLA [Suspect]
     Active Substance: APREMILAST
     Dosage: 30 MILLIGRAM
     Route: 048
  3. OTEZLA [Suspect]
     Active Substance: APREMILAST
     Indication: PSORIATIC ARTHROPATHY
     Dosage: 60 MILLIGRAM
     Route: 048
     Dates: start: 201905

REACTIONS (4)
  - Nasopharyngitis [Not Recovered/Not Resolved]
  - Respiratory tract congestion [Unknown]
  - Upper respiratory tract infection [Unknown]
  - Headache [Not Recovered/Not Resolved]

NARRATIVE: CASE EVENT DATE: 2019
